FAERS Safety Report 22610032 (Version 2)
Quarter: 2023Q2

REPORT INFORMATION
  Report Type: Report from Study
  Country: CA (occurrence: None)
  Receive Date: 20230616
  Receipt Date: 20230621
  Transmission Date: 20230721
  Serious: Yes (Disabling)
  Sender: FDA-Public Use
  Company Number: CA-Eisai Medical Research-EC-2023-142435

PATIENT
  Age: 63 Year
  Sex: Male
  Weight: 83 kg

DRUGS (17)
  1. LENVATINIB [Suspect]
     Active Substance: LENVATINIB
     Indication: Renal cell carcinoma
     Route: 048
     Dates: start: 20230517, end: 20230529
  2. BELZUTIFAN [Suspect]
     Active Substance: BELZUTIFAN
     Indication: Renal cell carcinoma
     Route: 048
     Dates: start: 20230517, end: 20230529
  3. LOPERAMIDE [Concomitant]
     Active Substance: LOPERAMIDE
     Dates: start: 202302, end: 20230609
  4. PROCHLORPERAZINE [Concomitant]
     Active Substance: PROCHLORPERAZINE
     Dates: start: 202211
  5. AMLODIPINE [Concomitant]
     Active Substance: AMLODIPINE BESYLATE
     Dates: start: 202211
  6. RAMIPRIL [Concomitant]
     Active Substance: RAMIPRIL
     Dates: start: 201711
  7. METFORMIN [Concomitant]
     Active Substance: METFORMIN HYDROCHLORIDE
     Dates: start: 201711
  8. LINAGLIPTIN [Concomitant]
     Active Substance: LINAGLIPTIN
     Dates: start: 201711
  9. ATORVASTATIN [Concomitant]
     Active Substance: ATORVASTATIN
     Dates: start: 201711
  10. OLANZAPINE [Concomitant]
     Active Substance: OLANZAPINE
     Dates: start: 202211, end: 20230605
  11. CALCIUM [Concomitant]
     Active Substance: CALCIUM
     Dates: start: 20230331
  12. VITAMIN D NOS [Concomitant]
     Active Substance: VITAMIN D NOS
     Dates: start: 20230331
  13. SULFAMETHOXAZOLE [Concomitant]
     Active Substance: SULFAMETHOXAZOLE
     Dates: start: 20230331
  14. TRIMETHOPRIM [Concomitant]
     Active Substance: TRIMETHOPRIM
     Dates: start: 20230331
  15. PREDNISONE [Concomitant]
     Active Substance: PREDNISONE
     Dates: start: 20230425, end: 20230524
  16. ACETAMINOPHEN [Concomitant]
     Active Substance: ACETAMINOPHEN
     Dates: start: 202208
  17. DILAUDID [Concomitant]
     Active Substance: HYDROMORPHONE HYDROCHLORIDE
     Dates: start: 20230310, end: 20230608

REACTIONS (2)
  - Nausea [Recovered/Resolved]
  - Enterocolitis infectious [Not Recovered/Not Resolved]

NARRATIVE: CASE EVENT DATE: 20230528
